FAERS Safety Report 23591803 (Version 1)
Quarter: 2024Q1

REPORT INFORMATION
  Report Type: Spontaneous
  Country: US (occurrence: US)
  Receive Date: 20240304
  Receipt Date: 20240304
  Transmission Date: 20240410
  Serious: No
  Sender: FDA-Public Use
  Company Number: US-SA-SAC20240229000086

PATIENT
  Age: 22 Year
  Sex: Female
  Weight: 102 kg

DRUGS (5)
  1. DUPIXENT [Suspect]
     Active Substance: DUPILUMAB
     Indication: Dermatitis atopic
     Dosage: 300 MG, QOW
     Route: 058
  2. ADDERALL [Concomitant]
     Active Substance: AMPHETAMINE ASPARTATE\AMPHETAMINE SULFATE\DEXTROAMPHETAMINE SACCHARATE\DEXTROAMPHETAMINE SULFATE
  3. SPIRONOLACTONE [Concomitant]
     Active Substance: SPIRONOLACTONE
  4. LAMOTRIGINE [Concomitant]
     Active Substance: LAMOTRIGINE
  5. TRINTELLIX [Concomitant]
     Active Substance: VORTIOXETINE HYDROBROMIDE

REACTIONS (1)
  - Dry skin [Not Recovered/Not Resolved]
